FAERS Safety Report 12945757 (Version 1)
Quarter: 2016Q4

REPORT INFORMATION
  Report Type: Spontaneous
  Country: DE (occurrence: DE)
  Receive Date: 20161115
  Receipt Date: 20161115
  Transmission Date: 20170207
  Serious: Yes (Other)
  Sender: FDA-Public Use
  Company Number: DE-SA-2016SA200721

PATIENT
  Sex: Female
  Weight: 65 kg

DRUGS (7)
  1. BELOC ZOK [Suspect]
     Active Substance: METOPROLOL SUCCINATE
     Dosage: STRENGTH- 95 MG
     Route: 048
     Dates: start: 2006
  2. ROPINIROLE. [Suspect]
     Active Substance: ROPINIROLE
     Route: 048
  3. EUTHYROX [Suspect]
     Active Substance: LEVOTHYROXINE SODIUM
     Dosage: STRENGTH- 50MCG
     Route: 048
  4. CORVATON RETARD [Suspect]
     Active Substance: MOLSIDOMINE
     Indication: INFARCTION
     Route: 048
     Dates: start: 2006, end: 2016
  5. DOPADURA C [Suspect]
     Active Substance: CARBIDOPA\LEVODOPA
     Dosage: STRENGTH- 100MG/25MG
     Route: 048
  6. CLOPIDOGREL [Suspect]
     Active Substance: CLOPIDOGREL BISULFATE
     Route: 048
     Dates: start: 2006
  7. ASPIRIN. [Suspect]
     Active Substance: ASPIRIN
     Dosage: STRENGTH- 100 MG
     Route: 048

REACTIONS (1)
  - Parkinson^s disease [Recovered/Resolved]
